FAERS Safety Report 16631056 (Version 1)
Quarter: 2019Q3

REPORT INFORMATION
  Report Type: Spontaneous
  Country: US (occurrence: US)
  Receive Date: 20190725
  Receipt Date: 20190725
  Transmission Date: 20191004
  Serious: Yes (Disabling, Other)
  Sender: FDA-Public Use
  Company Number: US-AUROBINDO-AUR-APL-2019-041025

PATIENT

DRUGS (5)
  1. CARBOPLATIN. [Suspect]
     Active Substance: CARBOPLATIN
     Indication: MEDULLOBLASTOMA
     Dosage: 35 MILLIGRAM/SQ. METER, ONCE A DAY
     Route: 042
  2. CISPLATIN. [Suspect]
     Active Substance: CISPLATIN
     Indication: MEDULLOBLASTOMA
     Dosage: 75 MILLIGRAM/SQ. METER
     Route: 042
  3. MESNA. [Concomitant]
     Active Substance: MESNA
     Indication: MEDULLOBLASTOMA
     Dosage: 360 MILLIGRAM/SQ. METER
     Route: 042
  4. CYCLOPHOSPHAMIDE. [Concomitant]
     Active Substance: CYCLOPHOSPHAMIDE
     Indication: MEDULLOBLASTOMA
     Dosage: 1000 MILLIGRAM/SQ. METER
     Route: 042
  5. LOMUSTINE. [Concomitant]
     Active Substance: LOMUSTINE
     Indication: MEDULLOBLASTOMA
     Dosage: 75 MILLIGRAM/SQ. METER
     Route: 048

REACTIONS (2)
  - Deafness neurosensory [Not Recovered/Not Resolved]
  - Toxicity to various agents [Not Recovered/Not Resolved]
